FAERS Safety Report 4272584-8 (Version None)
Quarter: 2004Q1

REPORT INFORMATION
  Report Type: 
  Country: None (occurrence: None)
  Receive Date: 20040114
  Receipt Date: 20040114
  Transmission Date: 20041129
  Serious: Yes (Life-Threatening, Hospitalization)
  Sender: FDA-Public Use
  Company Number: None

PATIENT
  Sex: Female
  Weight: 136.5327 kg

DRUGS (1)
  1. DIFLUCAN [Suspect]
     Dosage: 1 PILL BY MOUTH
     Route: 048
     Dates: start: 20040109, end: 20040110

REACTIONS (1)
  - STEVENS-JOHNSON SYNDROME [None]
